FAERS Safety Report 7759909-3 (Version None)
Quarter: 2011Q3

REPORT INFORMATION
  Report Type: 
  Country: None (occurrence: None)
  Receive Date: 20110919
  Receipt Date: 20110906
  Transmission Date: 20111222
  Serious: Yes (Hospitalization, Other)
  Sender: FDA-Public Use
  Company Number: US-MERCK-1102USA02321

PATIENT
  Age: 39 Year
  Sex: Female
  Weight: 80 kg

DRUGS (12)
  1. FOSAMAX [Suspect]
     Indication: OSTEOPOROSIS
     Route: 048
     Dates: start: 19990401, end: 20010701
  2. IRON (UNSPECIFIED) [Concomitant]
     Route: 065
     Dates: start: 19980301, end: 20000701
  3. ALENDRONATE SODIUM [Suspect]
     Indication: OSTEOPENIA
     Route: 048
     Dates: start: 20080301, end: 20100701
  4. VITAMINS (UNSPECIFIED) [Concomitant]
     Route: 065
     Dates: start: 19981101
  5. ALENDRONATE SODIUM [Suspect]
     Indication: OSTEOPOROSIS
     Route: 048
     Dates: start: 20080301, end: 20100701
  6. ACTONEL [Suspect]
     Route: 048
     Dates: start: 20100701
  7. FOSAMAX [Suspect]
     Route: 048
     Dates: start: 20000101, end: 20080201
  8. FOSAMAX [Suspect]
     Indication: OSTEOPENIA
     Route: 048
     Dates: start: 19990401, end: 20010701
  9. FOSAMAX [Suspect]
     Route: 048
     Dates: start: 20000101, end: 20080201
  10. VITAMIN B COMPLEX [Concomitant]
     Route: 065
     Dates: start: 19981101
  11. PREDNISONE [Suspect]
     Indication: MYASTHENIA GRAVIS
     Route: 065
     Dates: start: 19910101
  12. FOSAMAX PLUS D [Suspect]
     Indication: OSTEOPOROSIS
     Route: 048
     Dates: start: 19990101, end: 20100101

REACTIONS (51)
  - DRUG HYPERSENSITIVITY [None]
  - GASTROENTERITIS [None]
  - FIBROMYALGIA [None]
  - RENAL CYST [None]
  - GASTROOESOPHAGEAL REFLUX DISEASE [None]
  - LOW TURNOVER OSTEOPATHY [None]
  - FEMUR FRACTURE [None]
  - HEPATIC STEATOSIS [None]
  - RADICULOPATHY [None]
  - PRODUCTIVE COUGH [None]
  - STRESS FRACTURE [None]
  - ROAD TRAFFIC ACCIDENT [None]
  - HAEMORRHOIDS [None]
  - DRY EYE [None]
  - TYPE 2 DIABETES MELLITUS [None]
  - DIVERTICULUM INTESTINAL [None]
  - HYPERTENSION [None]
  - FIBROMATOSIS [None]
  - MUSCLE INJURY [None]
  - HAEMATOCHEZIA [None]
  - DRY MOUTH [None]
  - MALAISE [None]
  - GASTROENTERITIS VIRAL [None]
  - ANAEMIA [None]
  - FALL [None]
  - OEDEMA PERIPHERAL [None]
  - PNEUMONIA [None]
  - OVERWEIGHT [None]
  - NECK PAIN [None]
  - PAIN [None]
  - HYPOXIA [None]
  - BURSITIS [None]
  - TENDON DISORDER [None]
  - SJOGREN'S SYNDROME [None]
  - RHEUMATOID ARTHRITIS [None]
  - NEUROPATHIC ARTHROPATHY [None]
  - HAEMORRHAGIC ANAEMIA [None]
  - DEHYDRATION [None]
  - ARTHRALGIA [None]
  - FOOT FRACTURE [None]
  - FATIGUE [None]
  - HYPERCHOLESTEROLAEMIA [None]
  - MAJOR DEPRESSION [None]
  - INTERVERTEBRAL DISC DISORDER [None]
  - DYSPEPSIA [None]
  - DIABETIC NEUROPATHY [None]
  - RENAL FAILURE ACUTE [None]
  - HYPERSENSITIVITY [None]
  - SINUSITIS [None]
  - PERIPHERAL SENSORY NEUROPATHY [None]
  - CATARACT [None]
